FAERS Safety Report 8498828-4 (Version None)
Quarter: 2012Q3

REPORT INFORMATION
  Report Type: 
  Country: None (occurrence: None)
  Receive Date: 20120710
  Receipt Date: 20120626
  Transmission Date: 20120928
  Serious: Yes (Hospitalization)
  Sender: FDA-Public Use
  Company Number: FR-AMGEN-FRASP2012041092

PATIENT
  Age: 57 Year
  Sex: Female

DRUGS (5)
  1. FOLIC ACID [Suspect]
     Dosage: UNK
     Route: 048
     Dates: start: 20020101, end: 20120525
  2. ENBREL [Suspect]
     Indication: RHEUMATOID ARTHRITIS
     Dosage: 50 MG, WEEKLY
     Route: 058
     Dates: start: 20101001, end: 20120401
  3. NAPROXEN [Suspect]
     Dosage: 550 MG DAILY INTERMITTENTLY
     Route: 048
     Dates: start: 20020101, end: 20120525
  4. LAMALINE                           /00764901/ [Suspect]
     Dosage: UNK
     Route: 048
     Dates: start: 20120517, end: 20120525
  5. METHOTREXATE SODIUM [Suspect]
     Indication: RHEUMATOID ARTHRITIS
     Dosage: 15 MG, WEEKLY
     Route: 058
     Dates: start: 20120401, end: 20120528

REACTIONS (2)
  - GENITAL ULCERATION [None]
  - NEUTROPENIA [None]
